FAERS Safety Report 6247192-X (Version None)
Quarter: 2009Q2

REPORT INFORMATION
  Report Type: 
  Country: None (occurrence: None)
  Receive Date: 20090626
  Receipt Date: 20090618
  Transmission Date: 20091009
  Serious: Yes (Hospitalization, Other)
  Sender: FDA-Public Use
  Company Number: US-PFIZER INC-2006044962

PATIENT
  Age: 49 Year

DRUGS (7)
  1. ACCUPRIL [Suspect]
     Indication: HYPERTENSION
     Route: 065
  2. ACCUPRIL [Suspect]
     Route: 065
  3. ACCUPRIL [Suspect]
     Route: 065
  4. ACCURETIC [Suspect]
     Indication: HYPERTENSION
     Route: 065
  5. ACCURETIC [Suspect]
     Route: 065
  6. NORVASC [Suspect]
     Indication: HYPERTENSION
     Route: 065
  7. HYDROCHLOROTHIAZIDE [Suspect]
     Indication: HYPERTENSION
     Route: 065

REACTIONS (5)
  - BACK PAIN [None]
  - BLOOD PRESSURE INADEQUATELY CONTROLLED [None]
  - BLOOD PRESSURE INCREASED [None]
  - BREAST CANCER [None]
  - PANIC ATTACK [None]
